FAERS Safety Report 24011384 (Version 1)
Quarter: 2024Q2

REPORT INFORMATION
  Report Type: Spontaneous
  Country: US (occurrence: US)
  Receive Date: 20240625
  Receipt Date: 20240625
  Transmission Date: 20240716
  Serious: Yes (Other)
  Sender: FDA-Public Use
  Company Number: US-JNJFOC-20240648774

PATIENT
  Age: 7 Decade
  Sex: Male
  Weight: 90.5 kg

DRUGS (3)
  1. TALQUETAMAB [Suspect]
     Active Substance: TALQUETAMAB
     Indication: Plasma cell myeloma
     Route: 058
     Dates: start: 202401
  2. TALQUETAMAB [Suspect]
     Active Substance: TALQUETAMAB
     Indication: Neoplasm malignant
     Route: 058
     Dates: start: 20240221
  3. TALQUETAMAB [Suspect]
     Active Substance: TALQUETAMAB
     Route: 058
     Dates: start: 20240520

REACTIONS (4)
  - Plasma cell myeloma [Unknown]
  - Pain in jaw [Unknown]
  - Hypoaesthesia [Unknown]
  - Headache [Unknown]
